FAERS Safety Report 11732719 (Version 1)
Quarter: 2015Q4

REPORT INFORMATION
  Report Type: Spontaneous
  Country: US (occurrence: US)
  Receive Date: 20151110
  Receipt Date: 20151110
  Transmission Date: 20160304
  Serious: No
  Sender: FDA-Public Use
  Company Number: US-ELI_LILLY_AND_COMPANY-US201203007385

PATIENT
  Age: 60 Year
  Sex: Female

DRUGS (11)
  1. LASIX [Concomitant]
     Active Substance: FUROSEMIDE
  2. NEXIUM [Concomitant]
     Active Substance: ESOMEPRAZOLE MAGNESIUM
  3. METOPROLOL [Concomitant]
     Active Substance: METOPROLOL
  4. FORTEO [Suspect]
     Active Substance: TERIPARATIDE
     Indication: OSTEOPOROSIS
     Dosage: 20 UG, QD
     Route: 058
     Dates: start: 201005
  5. FORTEO [Suspect]
     Active Substance: TERIPARATIDE
     Dosage: 20 UG, QD
     Route: 058
  6. FORTEO [Suspect]
     Active Substance: TERIPARATIDE
     Dosage: 20 UG, QD
     Route: 058
  7. LOVASTATIN. [Concomitant]
     Active Substance: LOVASTATIN
  8. CLARINEX [Concomitant]
     Active Substance: DESLORATADINE
  9. LANTUS [Concomitant]
     Active Substance: INSULIN GLARGINE
  10. ASA [Concomitant]
     Active Substance: ASPIRIN
  11. NOVOLOG [Concomitant]
     Active Substance: INSULIN ASPART

REACTIONS (2)
  - Fall [Recovered/Resolved]
  - Ligament sprain [Recovered/Resolved]
